FAERS Safety Report 9773638 (Version 1)
Quarter: 2013Q4

REPORT INFORMATION
  Report Type: Report from Study
  Country: US (occurrence: US)
  Receive Date: 20131219
  Receipt Date: 20131219
  Transmission Date: 20140711
  Serious: Yes (Death, Other)
  Sender: FDA-Public Use
  Company Number: US-BAXTER-2013BAX050878

PATIENT
  Age: 47 Year
  Sex: Male

DRUGS (7)
  1. OSMITROL INJECTION (MANNITOL INJECTION, USP) [Suspect]
     Indication: OLIGURIA
     Route: 042
  2. OSMITROL INJECTION (MANNITOL INJECTION, USP) [Suspect]
     Route: 042
  3. PENTOTHAL SODIUM [Suspect]
     Indication: INDUCTION OF ANAESTHESIA
     Route: 065
  4. NITROUS OXIDE [Suspect]
     Indication: INDUCTION OF ANAESTHESIA
     Route: 065
  5. OXYGEN [Suspect]
     Indication: INDUCTION OF ANAESTHESIA
     Route: 055
  6. FLUOTHANE [Suspect]
     Indication: INDUCTION OF ANAESTHESIA
     Dosage: 0.5-1%
     Route: 065
  7. SUCCINYLCHOLINE [Suspect]
     Indication: INDUCTION OF ANAESTHESIA
     Route: 065

REACTIONS (4)
  - Atrioventricular block [Fatal]
  - Hypoxia [Unknown]
  - Renal tubular disorder [Unknown]
  - Urinary casts [Unknown]
